FAERS Safety Report 5368994-8 (Version None)
Quarter: 2007Q2

REPORT INFORMATION
  Report Type: 
  Country: None (occurrence: None)
  Receive Date: 20070625
  Receipt Date: 20061120
  Transmission Date: 20071010
  Serious: No
  Sender: FDA-Public Use
  Company Number: US-ASTRAZENECA-2006UW25617

PATIENT
  Age: 66 Year
  Sex: Female
  Weight: 66.7 kg

DRUGS (7)
  1. CRESTOR [Suspect]
     Indication: BLOOD CHOLESTEROL INCREASED
     Route: 048
     Dates: start: 20061001
  2. SYNTHROID [Concomitant]
  3. INDER [Concomitant]
  4. ADVICOR [Concomitant]
  5. LOPRESSOR [Concomitant]
  6. MAXZIDE [Concomitant]
  7. METOPROLOL SUCCINATE [Concomitant]

REACTIONS (3)
  - DIARRHOEA [None]
  - DISORIENTATION [None]
  - DIZZINESS [None]
